FAERS Safety Report 4632635-5 (Version None)
Quarter: 2005Q2

REPORT INFORMATION
  Report Type: 
  Country: None (occurrence: None)
  Receive Date: 20050331
  Receipt Date: 20040827
  Transmission Date: 20051028
  Serious: Yes (Hospitalization, Other)
  Sender: FDA-Public Use
  Company Number: 200414227BCC

PATIENT
  Age: 64 Year
  Sex: Female
  Weight: 85.2762 kg

DRUGS (4)
  1. ALEVE (CAPLET) [Suspect]
     Indication: ANALGESIC EFFECT
     Dosage: 220 MG, ONCE, ORAL
     Route: 048
     Dates: start: 20040826
  2. VITAMINS (NOS) [Concomitant]
  3. LECITHIN [Concomitant]
  4. BENADRYL ^WARNER-LAMBERT^ [Concomitant]

REACTIONS (4)
  - BURNING SENSATION [None]
  - DIZZINESS [None]
  - HYPERSENSITIVITY [None]
  - URTICARIA [None]
